FAERS Safety Report 7121404-2 (Version None)
Quarter: 2010Q4

REPORT INFORMATION
  Report Type: 
  Country: None (occurrence: None)
  Receive Date: 20101124
  Receipt Date: 20101117
  Transmission Date: 20110411
  Serious: Yes (Other)
  Sender: FDA-Public Use
  Company Number: BR-SANOFI-AVENTIS-2010SA058749

PATIENT
  Sex: Male
  Weight: 88 kg

DRUGS (9)
  1. LANTUS [Suspect]
     Dosage: 60 IU IN THE MORNING AND 10 IU AT NIGHT
     Route: 058
     Dates: start: 20101113, end: 20101116
  2. LANTUS [Suspect]
     Dosage: 60 IU IN THE MORNING AND 10 IU AT NIGHT
     Route: 058
     Dates: start: 20070101
  3. CARDIAC THERAPY [Interacting]
     Indication: CARDIAC DISORDER
  4. SIMVASTATIN [Concomitant]
     Route: 048
  5. ASPIRIN [Concomitant]
     Route: 048
     Dates: start: 20040101
  6. VERAPAMIL [Concomitant]
     Route: 048
  7. REGULAR INSULIN [Concomitant]
     Indication: TYPE 1 DIABETES MELLITUS
     Dosage: ACCORDING TO GLYCEMIA
     Route: 058
     Dates: start: 20000101
  8. METOPROLOL SUCCINATE [Concomitant]
     Route: 048
     Dates: start: 20040101
  9. CHOLESTEROL- AND TRIGLYCERIDE REDUCERS [Concomitant]
     Route: 048
     Dates: start: 20101001

REACTIONS (9)
  - BLOOD GLUCOSE INCREASED [None]
  - DIZZINESS [None]
  - DRUG INEFFECTIVE [None]
  - DRUG INTERACTION [None]
  - EYE IRRITATION [None]
  - HYPERHIDROSIS [None]
  - HYPOGLYCAEMIA [None]
  - RETINAL DETACHMENT [None]
  - VISION BLURRED [None]
